FAERS Safety Report 7219693-9 (Version None)
Quarter: 2011Q1

REPORT INFORMATION
  Report Type: 
  Country: None (occurrence: None)
  Receive Date: 20110111
  Receipt Date: 20101228
  Transmission Date: 20110831
  Serious: Yes (Other)
  Sender: FDA-Public Use
  Company Number: US-MYLANLABS-2011S1000644

PATIENT
  Age: 64 Year
  Sex: Female

DRUGS (5)
  1. TRICOR [Concomitant]
  2. CELEXA [Concomitant]
  3. SOTRADECOL [Suspect]
     Route: 042
     Dates: start: 20100930
  4. DORYX [Concomitant]
  5. COQ10 [Concomitant]

REACTIONS (2)
  - DRUG HYPERSENSITIVITY [None]
  - WRONG TECHNIQUE IN DRUG USAGE PROCESS [None]
